FAERS Safety Report 7937478-2 (Version None)
Quarter: 2011Q4

REPORT INFORMATION
  Report Type: 
  Country: None (occurrence: None)
  Receive Date: 20111123
  Receipt Date: 20111121
  Transmission Date: 20120403
  Serious: Yes (Other)
  Sender: FDA-Public Use
  Company Number: GR-BRISTOL-MYERS SQUIBB COMPANY-16240749

PATIENT
  Age: 37 Year
  Sex: Female

DRUGS (2)
  1. LAMICTAL [Concomitant]
     Dates: start: 20070101
  2. ABILIFY [Suspect]
     Indication: BIPOLAR DISORDER
     Dosage: JUL11-SEP11 30MG SEP11-TILL DATE 15MG
     Route: 048
     Dates: start: 20110701

REACTIONS (1)
  - GALACTORRHOEA [None]
